FAERS Safety Report 20623998 (Version 1)
Quarter: 2022Q1

REPORT INFORMATION
  Report Type: Spontaneous
  Country: US (occurrence: US)
  Receive Date: 20220322
  Receipt Date: 20220322
  Transmission Date: 20220424
  Serious: No
  Sender: FDA-Public Use
  Company Number: US-ALLERGAN-2112715US

PATIENT
  Sex: Female

DRUGS (2)
  1. LATISSE [Suspect]
     Active Substance: BIMATOPROST
     Indication: Growth of eyelashes
     Dosage: 2 GTT, QHS
     Route: 061
     Dates: end: 20210322
  2. VALTREX [Concomitant]
     Active Substance: VALACYCLOVIR HYDROCHLORIDE
     Indication: Herpes simplex
     Dosage: 500 MG, QD

REACTIONS (2)
  - Eyelids pruritus [Not Recovered/Not Resolved]
  - Swelling of eyelid [Not Recovered/Not Resolved]

NARRATIVE: CASE EVENT DATE: 20210321
